FAERS Safety Report 7202583-5 (Version None)
Quarter: 2010Q4

REPORT INFORMATION
  Report Type: 
  Country: None (occurrence: None)
  Receive Date: 20101229
  Receipt Date: 20101227
  Transmission Date: 20110411
  Serious: Yes (Other)
  Sender: FDA-Public Use
  Company Number: PHHY2010JP85617

PATIENT
  Age: 78 Year
  Sex: Female

DRUGS (1)
  1. LAMISIL [Suspect]
     Indication: TINEA PEDIS
     Dosage: UNK
     Route: 048

REACTIONS (7)
  - ACUTE GENERALISED EXANTHEMATOUS PUSTULOSIS [None]
  - EPIDERMAL NECROSIS [None]
  - ERYTHEMA [None]
  - OEDEMA [None]
  - PYREXIA [None]
  - RASH [None]
  - RASH PUSTULAR [None]
